FAERS Safety Report 9913067 (Version 1)
Quarter: 2014Q1

REPORT INFORMATION
  Report Type: Spontaneous
  Country: US (occurrence: None)
  Receive Date: 20140214
  Receipt Date: 20140214
  Transmission Date: 20141002
  Serious: Yes (Life-Threatening, Hospitalization)
  Sender: FDA-Public Use
  Company Number: AUR-APL-2014-01463

PATIENT
  Age: 50 Year
  Sex: Female

DRUGS (1)
  1. TRIMETHOPRIM+SULFAMETHOXAZOLE [Suspect]
     Indication: TOOTH INFECTION

REACTIONS (3)
  - Rash erythematous [None]
  - Petechiae [None]
  - Thrombocytopenia [None]
